FAERS Safety Report 26219246 (Version 1)
Quarter: 2025Q4

REPORT INFORMATION
  Report Type: Spontaneous
  Country: US (occurrence: US)
  Receive Date: 20251231
  Receipt Date: 20251231
  Transmission Date: 20260118
  Serious: Yes (Other)
  Sender: PFIZER
  Company Number: US-PFIZER INC-PV202500151387

PATIENT
  Age: 72 Year
  Sex: Female

DRUGS (3)
  1. DEPO-PROVERA [Suspect]
     Active Substance: MEDROXYPROGESTERONE ACETATE
     Indication: Contraception
     Dosage: UNK
  2. DEPO-PROVERA [Suspect]
     Active Substance: MEDROXYPROGESTERONE ACETATE
     Indication: Meningioma benign
  3. ELIQUIS [Concomitant]
     Active Substance: APIXABAN
     Dosage: 5 MG, 2X/DAY

REACTIONS (9)
  - Meningioma [Not Recovered/Not Resolved]
  - Transient ischaemic attack [Unknown]
  - Cerebral atrophy [Unknown]
  - Atrial fibrillation [Not Recovered/Not Resolved]
  - Optic nerve compression [Unknown]
  - Headache [Not Recovered/Not Resolved]
  - Arthropathy [Unknown]
  - Hypoacusis [Unknown]
  - Ischaemia [Unknown]

NARRATIVE: CASE EVENT DATE: 20000101
